FAERS Safety Report 24711753 (Version 1)
Quarter: 2024Q4

REPORT INFORMATION
  Report Type: Spontaneous
  Country: US (occurrence: US)
  Receive Date: 20241209
  Receipt Date: 20241209
  Transmission Date: 20250114
  Serious: Yes (Other)
  Sender: MUNDIPHARMA EDO
  Company Number: US-Mundipharma Research Limited-2166742

PATIENT
  Age: 69 Year
  Sex: Male

DRUGS (1)
  1. REZZAYO [Suspect]
     Active Substance: REZAFUNGIN
     Indication: Candida osteomyelitis

REACTIONS (3)
  - Hypokalaemia [Unknown]
  - Off label use [Unknown]
  - Migraine [Unknown]
